FAERS Safety Report 24127385 (Version 3)
Quarter: 2025Q1

REPORT INFORMATION
  Report Type: Spontaneous
  Country: CN (occurrence: CN)
  Receive Date: 20240723
  Receipt Date: 20250319
  Transmission Date: 20250409
  Serious: Yes (Other)
  Sender: PFIZER
  Company Number: CN-PFIZER INC-PV202400094176

PATIENT
  Age: 17 Year
  Sex: Male

DRUGS (5)
  1. XYNTHA [Suspect]
     Active Substance: MOROCTOCOG ALFA
     Indication: Haemophilia
     Dosage: 1500 IU, ALTERNATE DAY
     Route: 042
     Dates: start: 20240304
  2. XYNTHA [Suspect]
     Active Substance: MOROCTOCOG ALFA
     Dosage: 1500 IU, ALTERNATE DAY
     Route: 042
     Dates: start: 20240321
  3. XYNTHA [Suspect]
     Active Substance: MOROCTOCOG ALFA
     Dosage: 1500 IU, ALTERNATE DAY
     Route: 042
     Dates: start: 20240404
  4. XYNTHA [Suspect]
     Active Substance: MOROCTOCOG ALFA
     Dosage: 1500 IU, ALTERNATE DAY
     Route: 042
     Dates: start: 20240502
  5. XYNTHA [Suspect]
     Active Substance: MOROCTOCOG ALFA
     Dosage: 1000 IU, 1X/DAY
     Route: 041
     Dates: start: 20250313

REACTIONS (11)
  - Haemorrhage intracranial [Unknown]
  - Extradural haematoma [Unknown]
  - Skull fracture [Unknown]
  - Ear haemorrhage [Unknown]
  - Skin haemorrhage [Unknown]
  - Contusion [Unknown]
  - Skin abrasion [Unknown]
  - Road traffic accident [Unknown]
  - Skin swelling [Unknown]
  - Pain of skin [Unknown]
  - Off label use [Unknown]

NARRATIVE: CASE EVENT DATE: 20240601
